FAERS Safety Report 5356489-7 (Version None)
Quarter: 2007Q2

REPORT INFORMATION
  Report Type: 
  Country: None (occurrence: None)
  Receive Date: 20070530
  Receipt Date: 20070110
  Transmission Date: 20071010
  Serious: Yes (Other)
  Sender: FDA-Public Use
  Company Number: US200609003702

PATIENT
  Age: 27 Year
  Sex: Male
  Weight: 70.3 kg

DRUGS (6)
  1. ZYPREXA [Suspect]
     Dosage: 20 MG
     Dates: start: 19990101, end: 20020101
  2. QUETIAPINE FUMARATE [Concomitant]
  3. RISPERIDONE [Concomitant]
  4. ZIPRASIDONE HCL [Concomitant]
  5. DIVALPROEX SODIUM [Concomitant]
  6. LITHIUM CARBONATE [Concomitant]

REACTIONS (5)
  - ABDOMINAL PAIN UPPER [None]
  - ANXIETY [None]
  - EMOTIONAL DISTRESS [None]
  - PAIN [None]
  - PANCREATITIS [None]
